FAERS Safety Report 11615840 (Version 1)
Quarter: 2015Q4

REPORT INFORMATION
  Report Type: Spontaneous
  Country: NL (occurrence: NL)
  Receive Date: 20151009
  Receipt Date: 20151009
  Transmission Date: 20160304
  Serious: Yes (Death)
  Sender: FDA-Public Use
  Company Number: NL-JNJFOC-20151004348

PATIENT
  Age: 86 Year
  Sex: Female
  Weight: 96 kg

DRUGS (11)
  1. BUMETANIDE. [Concomitant]
     Active Substance: BUMETANIDE
     Route: 048
     Dates: start: 20140502, end: 20141031
  2. COLECALCIFEROL [Concomitant]
     Active Substance: CHOLECALCIFEROL
     Route: 048
     Dates: start: 20101201, end: 20141031
  3. OXAZEPAM. [Concomitant]
     Active Substance: OXAZEPAM
     Route: 048
     Dates: start: 20110628, end: 20141031
  4. SENNOSIDE A+B [Concomitant]
     Active Substance: SENNOSIDES A AND B
     Route: 048
     Dates: start: 20110805, end: 20141031
  5. RISPERDAL [Suspect]
     Active Substance: RISPERIDONE
     Indication: DELUSION
     Route: 048
     Dates: start: 20140929, end: 20141029
  6. CRANBERRY/VITAMIN C [Concomitant]
     Route: 048
     Dates: start: 20140523
  7. VENLAFAXINE [Concomitant]
     Active Substance: VENLAFAXINE HYDROCHLORIDE
     Route: 048
     Dates: start: 20111227, end: 20141031
  8. LACTULOSESTROOP [Concomitant]
     Route: 048
     Dates: start: 20101102, end: 20141031
  9. MICONAZOL [Concomitant]
     Active Substance: MICONAZOLE NITRATE
     Route: 003
     Dates: start: 20140909, end: 20141031
  10. ESTRIOL [Concomitant]
     Active Substance: ESTRIOL
     Route: 067
     Dates: start: 20111121, end: 20141031
  11. PARACETAMOL [Concomitant]
     Active Substance: ACETAMINOPHEN
     Route: 048
     Dates: start: 20130516, end: 20141031

REACTIONS (3)
  - Gait disturbance [Not Recovered/Not Resolved]
  - Urinary incontinence [Not Recovered/Not Resolved]
  - Acute myocardial infarction [Fatal]

NARRATIVE: CASE EVENT DATE: 20141026
